FAERS Safety Report 13106941 (Version 1)
Quarter: 2017Q1

REPORT INFORMATION
  Report Type: Spontaneous
  Country: US (occurrence: US)
  Receive Date: 20170111
  Receipt Date: 20170111
  Transmission Date: 20170428
  Serious: Yes (Other)
  Sender: FDA-Public Use
  Company Number: US-BAUSCH-BL-2017-000583

PATIENT
  Sex: Male

DRUGS (7)
  1. XIFAXAN [Suspect]
     Active Substance: RIFAXIMIN
     Indication: ALPHA-1 ANTI-TRYPSIN DEFICIENCY
     Route: 048
  2. NADOLOL. [Suspect]
     Active Substance: NADOLOL
     Indication: ALPHA-1 ANTI-TRYPSIN DEFICIENCY
     Route: 065
  3. OMEPRAZOLE. [Suspect]
     Active Substance: OMEPRAZOLE
     Indication: ALPHA-1 ANTI-TRYPSIN DEFICIENCY
     Route: 065
  4. LASIX [Suspect]
     Active Substance: FUROSEMIDE
     Indication: ALPHA-1 ANTI-TRYPSIN DEFICIENCY
     Route: 065
  5. ALDACTONE [Suspect]
     Active Substance: SPIRONOLACTONE
     Indication: ALPHA-1 ANTI-TRYPSIN DEFICIENCY
     Route: 065
  6. LACTULOSE. [Suspect]
     Active Substance: LACTULOSE
     Indication: ALPHA-1 ANTI-TRYPSIN DEFICIENCY
     Route: 065
  7. LASIX [Suspect]
     Active Substance: FUROSEMIDE
     Route: 065

REACTIONS (7)
  - Fall [Unknown]
  - Pancreatic cyst [Unknown]
  - Arthralgia [Unknown]
  - Gastric varices [Unknown]
  - Off label use [Unknown]
  - Contusion [Unknown]
  - Weight increased [Unknown]
